FAERS Safety Report 25496817 (Version 1)
Quarter: 2025Q3

REPORT INFORMATION
  Report Type: Spontaneous
  Country: US (occurrence: None)
  Receive Date: 20250701
  Receipt Date: 20250701
  Transmission Date: 20251020
  Serious: Yes (Death, Other)
  Sender: MDD OPERATIONS
  Company Number: US-MDD US Operations-MDD202503-000866

PATIENT
  Age: 79 Year
  Sex: Male

DRUGS (1)
  1. APOKYN [Suspect]
     Active Substance: APOMORPHINE HYDROCHLORIDE
     Indication: Parkinson^s disease
     Route: 058
     Dates: start: 20250306

REACTIONS (7)
  - Death [Fatal]
  - Fall [Unknown]
  - Hand fracture [Unknown]
  - Head injury [Recovered/Resolved]
  - Wound [Recovered/Resolved]
  - Somnolence [Not Recovered/Not Resolved]
  - Fall [Recovered/Resolved]

NARRATIVE: CASE EVENT DATE: 20250301
